FAERS Safety Report 4295014-9 (Version None)
Quarter: 2004Q1

REPORT INFORMATION
  Report Type: 
  Country: None (occurrence: None)
  Receive Date: 20040212
  Receipt Date: 20040212
  Transmission Date: 20041129
  Serious: Yes (Hospitalization)
  Sender: FDA-Public Use
  Company Number: None

PATIENT
  Age: 56 Year
  Sex: Male
  Weight: 72 kg

DRUGS (1)
  1. PHENYTOIN [Suspect]
     Indication: CONVULSION
     Dosage: 600 MG PO
     Route: 048
     Dates: start: 20040113, end: 20040114

REACTIONS (4)
  - CONJUNCTIVITIS [None]
  - STEVENS-JOHNSON SYNDROME [None]
  - TREATMENT NONCOMPLIANCE [None]
  - URTICARIA [None]
